FAERS Safety Report 16088468 (Version 1)
Quarter: 2019Q1

REPORT INFORMATION
  Report Type: Spontaneous
  Country: US (occurrence: US)
  Receive Date: 20190319
  Receipt Date: 20190319
  Transmission Date: 20190418
  Serious: No
  Sender: FDA-Public Use
  Company Number: US-PFIZER INC-2019109121

PATIENT
  Age: 66 Year
  Sex: Female
  Weight: 87.54 kg

DRUGS (2)
  1. LYRICA [Suspect]
     Active Substance: PREGABALIN
     Indication: SPINAL FUSION SURGERY
     Dosage: 50 MG, 3X/DAY
     Route: 048
     Dates: start: 20190306
  2. LYRICA [Suspect]
     Active Substance: PREGABALIN
     Indication: NEURALGIA

REACTIONS (1)
  - Pain [Unknown]
